FAERS Safety Report 25669070 (Version 2)
Quarter: 2025Q3

REPORT INFORMATION
  Report Type: Spontaneous
  Country: JP (occurrence: JP)
  Receive Date: 20250812
  Receipt Date: 20250822
  Transmission Date: 20251021
  Serious: Yes (Hospitalization, Other)
  Sender: RANBAXY
  Company Number: JP-SUN PHARMACEUTICAL INDUSTRIES INC-2025R1-521757

PATIENT
  Age: 71 Year
  Sex: Male
  Weight: 64.1 kg

DRUGS (3)
  1. VALPROATE [Suspect]
     Active Substance: VALPROIC ACID
     Indication: Epilepsy
     Route: 048
  2. VALPROATE [Suspect]
     Active Substance: VALPROIC ACID
     Indication: Substance-induced mood disorder
  3. LITHIUM CARBONATE [Concomitant]
     Active Substance: LITHIUM CARBONATE
     Indication: Substance-induced mood disorder
     Dosage: 500 MILLIGRAM, QD
     Route: 065

REACTIONS (2)
  - Drug level decreased [Unknown]
  - Encephalopathy [Unknown]
